FAERS Safety Report 18353780 (Version 2)
Quarter: 2020Q4

REPORT INFORMATION
  Report Type: Other
  Country: ES (occurrence: ES)
  Receive Date: 20201006
  Receipt Date: 20201019
  Transmission Date: 20210114
  Serious: Yes (Death, Other)
  Sender: FDA-Public Use
  Company Number: ES-ROCHE-2689928

PATIENT

DRUGS (6)
  1. GANCICLOVIR. [Suspect]
     Active Substance: GANCICLOVIR
     Indication: CYTOMEGALOVIRUS INFECTION
     Dosage: INDUCTION DOSE
     Route: 042
  2. GANCICLOVIR. [Suspect]
     Active Substance: GANCICLOVIR
     Dosage: MAINTANANCE DOSE
     Route: 042
  3. VALGANCICLOVIR. [Suspect]
     Active Substance: VALGANCICLOVIR
     Route: 048
  4. VALGANCICLOVIR. [Suspect]
     Active Substance: VALGANCICLOVIR
     Indication: CYTOMEGALOVIRUS INFECTION
     Route: 048
  5. FOSCARNET [Suspect]
     Active Substance: FOSCARNET
     Indication: CYTOMEGALOVIRUS INFECTION
     Route: 042
  6. FOSCARNET [Suspect]
     Active Substance: FOSCARNET
     Route: 042

REACTIONS (7)
  - Rash [Fatal]
  - Cytomegalovirus infection reactivation [Fatal]
  - Colitis [Fatal]
  - Acute graft versus host disease [Fatal]
  - Viral mutation identified [Fatal]
  - Neutropenia [Fatal]
  - Cytomegalovirus enterocolitis [Unknown]
